FAERS Safety Report 5342555-9 (Version None)
Quarter: 2007Q2

REPORT INFORMATION
  Report Type: 
  Country: None (occurrence: None)
  Receive Date: 20070416
  Receipt Date: 20070111
  Transmission Date: 20071010
  Serious: No
  Sender: FDA-Public Use
  Company Number: 2007SP000135

PATIENT
  Age: 57 Year
  Sex: Female
  Weight: 84.8226 kg

DRUGS (7)
  1. LUNESTA [Suspect]
     Indication: INSOMNIA
     Dosage: 3 MG; ORAL
     Route: 048
     Dates: start: 20061101
  2. ALTACE [Concomitant]
  3. AMARYL [Concomitant]
  4. PIOGLITAZONE [Concomitant]
  5. HYDROCHLORIDE [Concomitant]
  6. METOPROLOL SUCCINATE [Concomitant]
  7. VYTORIN [Concomitant]

REACTIONS (1)
  - DYSGEUSIA [None]
